FAERS Safety Report 9100161 (Version 1)
Quarter: 2013Q1

REPORT INFORMATION
  Report Type: Other
  Country: IN (occurrence: IN)
  Receive Date: 20130215
  Receipt Date: 20130215
  Transmission Date: 20140127
  Serious: Yes (Other)
  Sender: FDA-Public Use
  Company Number: IN-BRISTOL-MYERS SQUIBB COMPANY-17350455

PATIENT
  Age: 35 Year
  Sex: Male

DRUGS (2)
  1. WARFARIN SODIUM [Suspect]
     Route: 048
  2. FRAGMIN [Suspect]
     Route: 058

REACTIONS (2)
  - Priapism [Unknown]
  - Dry gangrene [Unknown]
